FAERS Safety Report 5910404-3 (Version None)
Quarter: 2008Q4

REPORT INFORMATION
  Report Type: 
  Country: None (occurrence: None)
  Receive Date: 20081006
  Receipt Date: 20081006
  Transmission Date: 20090506
  Serious: Yes (Death)
  Sender: FDA-Public Use
  Company Number: None

PATIENT
  Age: 91 Year
  Sex: Female
  Weight: 68.0396 kg

DRUGS (1)
  1. HEPARIN [Suspect]
     Dosage: 5,000 UNITS
     Dates: start: 20080310, end: 20080312

REACTIONS (3)
  - BLOOD PRESSURE DECREASED [None]
  - HAEMATEMESIS [None]
  - MALAISE [None]
